FAERS Safety Report 18184280 (Version 2)
Quarter: 2025Q2

REPORT INFORMATION
  Report Type: Spontaneous
  Country: FR (occurrence: FR)
  Receive Date: 20200824
  Receipt Date: 20250629
  Transmission Date: 20250717
  Serious: Yes (Hospitalization, Other)
  Sender: AUROBINDO
  Company Number: FR-NAPPMUNDI-GBR-2020-0078286

PATIENT
  Age: 30 Year
  Sex: Female

DRUGS (6)
  1. OXYCODONE [Suspect]
     Active Substance: OXYCODONE
     Indication: Procedural pain
     Dosage: 5 MILLIGRAM, FOUR TIMES/DAY
     Route: 048
  2. NEFOPAM [Suspect]
     Active Substance: NEFOPAM
     Indication: Procedural pain
     Dosage: 120 MILLIGRAM, ONCE A DAY
     Route: 041
  3. ATOSIBAN [Suspect]
     Active Substance: ATOSIBAN
     Indication: Uterine contractions during pregnancy
     Route: 065
  4. MORPHINE [Suspect]
     Active Substance: MORPHINE
     Indication: Back pain
     Route: 042
  5. MORPHINE SULFATE [Suspect]
     Active Substance: MORPHINE SULFATE
     Indication: Procedural pain
     Route: 048
  6. OXYCODONE HYDROCHLORIDE [Suspect]
     Active Substance: OXYCODONE HYDROCHLORIDE
     Indication: Back pain
     Dosage: 50 MILLIGRAM, ONCE A DAY,(PATIENT-CONTROLLED ANALGESIA)
     Route: 042

REACTIONS (7)
  - Acute kidney injury [Recovered/Resolved]
  - Premature delivery [Recovered/Resolved]
  - Maternal exposure during pregnancy [Recovered/Resolved]
  - Urinary ascites [Recovered/Resolved]
  - Pleural effusion [Recovered/Resolved]
  - Respiratory disorder [Recovered/Resolved]
  - Condition aggravated [Recovered/Resolved]
